FAERS Safety Report 23137783 (Version 1)
Quarter: 2023Q4

REPORT INFORMATION
  Report Type: Spontaneous
  Country: US (occurrence: None)
  Receive Date: 20231031
  Receipt Date: 20231031
  Transmission Date: 20240110
  Serious: Yes (Hospitalization)
  Sender: FDA-Public Use
  Company Number: None

PATIENT
  Age: 50 Year
  Sex: Female
  Weight: 84.37 kg

DRUGS (5)
  1. NORGESTIMATE AND ETHINYL ESTRADIOL [Suspect]
     Active Substance: ETHINYL ESTRADIOL\NORGESTIMATE
     Indication: Menopause
     Dosage: OTHER STRENGTH : 0.15MG-30MCG/10MCG;?FREQUENCY : DAILY;?
     Route: 048
     Dates: start: 20230811, end: 20231031
  2. BUPROPION [Concomitant]
     Active Substance: BUPROPION
  3. OMEPRAZOLE [Concomitant]
     Active Substance: OMEPRAZOLE
  4. mutlivitamin [Concomitant]
  5. VITAMIN B COMPLEX [Concomitant]
     Active Substance: CYANOCOBALAMIN\DEXPANTHENOL\NIACINAMIDE\PYRIDOXINE HYDROCHLORIDE\RIBOFLAVIN 5^-PHOSPHATE SODIUM\THIA

REACTIONS (2)
  - Deep vein thrombosis [None]
  - Peripheral swelling [None]

NARRATIVE: CASE EVENT DATE: 20231030
